FAERS Safety Report 8871711 (Version 1)
Quarter: 2012Q4

REPORT INFORMATION
  Report Type: 
  Country: FR (occurrence: FR)
  Receive Date: 20121029
  Receipt Date: 20121029
  Transmission Date: 20130627
  Serious: Yes (Hospitalization)
  Sender: FDA-Public Use
  Company Number: PHHY2012FR096050

PATIENT
  Sex: Male

DRUGS (3)
  1. NEORAL [Suspect]
     Dosage: 50 mg, BID
     Dates: start: 200707
  2. CELLCEPT [Concomitant]
     Dosage: 250 mg, BID
  3. CORTICOSTEROIDS [Concomitant]

REACTIONS (11)
  - Chronic obstructive pulmonary disease [Unknown]
  - Respiratory disorder [Unknown]
  - Bronchial injury [Unknown]
  - Traumatic lung injury [Unknown]
  - Interstitial lung disease [Recovered/Resolved with Sequelae]
  - Rales [Unknown]
  - Dyspnoea [Unknown]
  - Emphysema [Unknown]
  - Obstructive airways disorder [Unknown]
  - Total lung capacity decreased [Unknown]
  - Blood carbon monoxide decreased [Unknown]
